FAERS Safety Report 6100277-0 (Version None)
Quarter: 2009Q1

REPORT INFORMATION
  Report Type: 
  Country: None (occurrence: None)
  Receive Date: 20090303
  Receipt Date: 20090219
  Transmission Date: 20090719
  Serious: Yes (Other)
  Sender: FDA-Public Use
  Company Number: CN-PFIZER INC-2009157555

PATIENT

DRUGS (4)
  1. SULPERAZON [Suspect]
     Indication: CHRONIC OBSTRUCTIVE PULMONARY DISEASE
     Dosage: 2 G, 3X/DAY
     Route: 042
     Dates: start: 20090109, end: 20090112
  2. ASCORBIC ACID [Concomitant]
     Dosage: UNK
     Dates: start: 20090109
  3. SAFFLOWER OIL [Concomitant]
     Dosage: UNK
     Dates: start: 20090109
  4. ISOSORBIDE MONONITRATE [Concomitant]
     Dosage: UNK
     Dates: start: 20090109

REACTIONS (1)
  - PLATELET COUNT DECREASED [None]
